FAERS Safety Report 6147047-5 (Version None)
Quarter: 2009Q2

REPORT INFORMATION
  Report Type: 
  Country: None (occurrence: None)
  Receive Date: 20090403
  Receipt Date: 20090327
  Transmission Date: 20091009
  Serious: Yes (Death, Hospitalization)
  Sender: FDA-Public Use
  Company Number: 2009SP005884

PATIENT
  Age: 70 Year
  Sex: Male

DRUGS (4)
  1. POSACONAZOLE [Suspect]
     Indication: FEBRILE NEUTROPENIA
     Dosage: 400 MG;BID;PO
     Route: 048
     Dates: start: 20090225, end: 20090303
  2. POSACONAZOLE [Suspect]
     Indication: FUNGAL SKIN INFECTION
     Dosage: 400 MG;BID;PO
     Route: 048
     Dates: start: 20090225, end: 20090303
  3. AMPHOTERICIN B [Concomitant]
  4. LIPOSOME [Concomitant]

REACTIONS (2)
  - LEUKAEMIA [None]
  - MALIGNANT NEOPLASM PROGRESSION [None]
